FAERS Safety Report 15739728 (Version 1)
Quarter: 2018Q4

REPORT INFORMATION
  Report Type: Report from Study
  Country: US (occurrence: US)
  Receive Date: 20181219
  Receipt Date: 20181219
  Transmission Date: 20190205
  Serious: Yes (Other)
  Sender: FDA-Public Use
  Company Number: US-JNJFOC-20181202194

PATIENT
  Age: 87 Year
  Sex: Male

DRUGS (10)
  1. VITAMIN B12 [Concomitant]
     Active Substance: CYANOCOBALAMIN
  2. METAMUCIL [Concomitant]
     Active Substance: PLANTAGO SEED
  3. IMBRUVICA [Suspect]
     Active Substance: IBRUTINIB
     Indication: CHRONIC LYMPHOCYTIC LEUKAEMIA
     Route: 048
     Dates: start: 20180905
  4. IMBRUVICA [Suspect]
     Active Substance: IBRUTINIB
     Indication: CHRONIC LYMPHOCYTIC LEUKAEMIA
     Route: 048
     Dates: start: 20180906, end: 20181203
  5. METOPROLOL. [Concomitant]
     Active Substance: METOPROLOL
  6. ATORVASTATIN [Concomitant]
     Active Substance: ATORVASTATIN
  7. ASPIRIN. [Concomitant]
     Active Substance: ASPIRIN
  8. VALSARTAN. [Concomitant]
     Active Substance: VALSARTAN
  9. CLOPIDOGREL [Concomitant]
     Active Substance: CLOPIDOGREL BISULFATE
  10. ALLOPURINOL. [Concomitant]
     Active Substance: ALLOPURINOL

REACTIONS (1)
  - Cardiac failure [Unknown]

NARRATIVE: CASE EVENT DATE: 20181116
